FAERS Safety Report 9156292 (Version 1)
Quarter: 2013Q1

REPORT INFORMATION
  Report Type: Spontaneous
  Country: DK (occurrence: DK)
  Receive Date: 20130204
  Receipt Date: 20130204
  Transmission Date: 20140127
  Serious: Yes (Hospitalization, Other)
  Sender: FDA-Public Use
  Company Number: DK-ELI_LILLY_AND_COMPANY-DK201301009116

PATIENT
  Age: 60 Year
  Sex: Female

DRUGS (3)
  1. ZYPREXA [Suspect]
     Indication: SCHIZOPHRENIA, PARANOID TYPE
     Dosage: UNK, UNKNOWN
  2. RISPERDAL [Concomitant]
     Indication: SCHIZOPHRENIA, PARANOID TYPE
     Dosage: UNK, UNKNOWN
  3. TRILAFON [Concomitant]
     Dosage: UNK

REACTIONS (6)
  - Blindness [Unknown]
  - Diplopia [Unknown]
  - Ear disorder [Unknown]
  - Diplegia [Unknown]
  - Urinary tract injury [Unknown]
  - Inflammation [Unknown]
